FAERS Safety Report 7465461-2 (Version None)
Quarter: 2011Q2

REPORT INFORMATION
  Report Type: 
  Country: None (occurrence: None)
  Receive Date: 20110509
  Receipt Date: 20110506
  Transmission Date: 20111010
  Serious: Yes (Other)
  Sender: FDA-Public Use
  Company Number: US-PFIZER INC-2011098131

PATIENT
  Sex: Male
  Weight: 79.365 kg

DRUGS (3)
  1. TENORMIN [Suspect]
     Indication: ARRHYTHMIA
  2. AMIODARONE HCL [Suspect]
     Indication: ATRIAL FIBRILLATION
     Dosage: UNK
     Route: 048
     Dates: start: 20060101, end: 20080101
  3. TENORMIN [Suspect]
     Indication: HEART RATE INCREASED
     Dosage: 25 MG, UNK
     Route: 048

REACTIONS (4)
  - EMOTIONAL DISORDER [None]
  - DYSURIA [None]
  - CARDIAC ABLATION [None]
  - FATIGUE [None]
